FAERS Safety Report 11965416 (Version 1)
Quarter: 2016Q1

REPORT INFORMATION
  Report Type: Spontaneous
  Country: US (occurrence: None)
  Receive Date: 20160125
  Receipt Date: 20160125
  Transmission Date: 20160526
  Serious: Yes (Other)
  Sender: FDA-Public Use
  Company Number: None

PATIENT
  Age: 9 Year
  Sex: Female
  Weight: 30.39 kg

DRUGS (4)
  1. AMITRIPTYLINE [Suspect]
     Active Substance: AMITRIPTYLINE
     Indication: ABDOMINAL PAIN
     Dosage: 1 PILL QHS/BEDTIME ORAL
     Route: 048
     Dates: start: 20151209, end: 20151211
  2. CITALOPRAM [Suspect]
     Active Substance: CITALOPRAM HYDROBROMIDE
     Indication: ABDOMINAL PAIN
     Dosage: 1 PILL QD ORAL
     Route: 048
     Dates: start: 20151130, end: 20151205
  3. CITALOPRAM [Suspect]
     Active Substance: CITALOPRAM HYDROBROMIDE
     Indication: DEPRESSION
     Dosage: 1 PILL QD ORAL
     Route: 048
     Dates: start: 20151130, end: 20151205
  4. AMITRIPTYLINE [Suspect]
     Active Substance: AMITRIPTYLINE
     Indication: INSOMNIA
     Dosage: 1 PILL QHS/BEDTIME ORAL
     Route: 048
     Dates: start: 20151209, end: 20151211

REACTIONS (1)
  - Haematochezia [None]
